FAERS Safety Report 6416060-2 (Version None)
Quarter: 2009Q4

REPORT INFORMATION
  Report Type: 
  Country: None (occurrence: None)
  Receive Date: 20091023
  Receipt Date: 20091007
  Transmission Date: 20100525
  Serious: Yes (Hospitalization, Other)
  Sender: FDA-Public Use
  Company Number: JPI-P-003991

PATIENT
  Age: 60 Year
  Sex: Female
  Weight: 71.6683 kg

DRUGS (12)
  1. XYREM [Suspect]
     Indication: SLEEP APNOEA SYNDROME
     Dosage: 6 GM (3 GM, 2 IN 1 D), ORAL : 9 GM (4.5 GM, 2 IN 1 D), ORAL : 10 GM (5 GM, 2 IN 1 D), ORAL
     Route: 048
     Dates: start: 20050501
  2. XYREM [Suspect]
     Indication: SLEEP APNOEA SYNDROME
     Dosage: 6 GM (3 GM, 2 IN 1 D), ORAL : 9 GM (4.5 GM, 2 IN 1 D), ORAL : 10 GM (5 GM, 2 IN 1 D), ORAL
     Route: 048
     Dates: start: 20070501
  3. XYREM [Suspect]
     Indication: SLEEP APNOEA SYNDROME
     Dosage: 6 GM (3 GM, 2 IN 1 D), ORAL : 9 GM (4.5 GM, 2 IN 1 D), ORAL : 10 GM (5 GM, 2 IN 1 D), ORAL
     Route: 048
     Dates: start: 20090804
  4. PREGABALIN [Concomitant]
  5. OXYCODONE [Concomitant]
  6. CARISOPRODOL [Concomitant]
  7. FENOFIBRATE [Concomitant]
  8. VALSARTAN [Concomitant]
  9. LEVETIRACETAM [Concomitant]
  10. DIAZEPAM [Concomitant]
  11. ROSIGLITAZONE MALEATE [Concomitant]
  12. FLUOXETINE [Concomitant]

REACTIONS (3)
  - INITIAL INSOMNIA [None]
  - SCOLIOSIS [None]
  - SURGERY [None]
